FAERS Safety Report 25077613 (Version 2)
Quarter: 2025Q4

REPORT INFORMATION
  Report Type: Spontaneous
  Country: GB (occurrence: US)
  Receive Date: 20250314
  Receipt Date: 20251103
  Transmission Date: 20260119
  Serious: No
  Sender: CELLTRION
  Company Number: GB-CELLTRION INC.-2025US004644

PATIENT

DRUGS (1)
  1. ZYMFENTRA [Suspect]
     Active Substance: INFLIXIMAB-DYYB
     Indication: Product used for unknown indication

REACTIONS (2)
  - Insurance issue [Unknown]
  - Therapy interrupted [Unknown]

NARRATIVE: CASE EVENT DATE: 20250127
